FAERS Safety Report 6366003-5 (Version None)
Quarter: 2009Q3

REPORT INFORMATION
  Report Type: 
  Country: None (occurrence: None)
  Receive Date: 20090919
  Receipt Date: 20090826
  Transmission Date: 20100115
  Serious: No
  Sender: FDA-Public Use
  Company Number: US-ABBOTT-09P-163-0593838-00

PATIENT
  Sex: Female
  Weight: 59.928 kg

DRUGS (4)
  1. HUMIRA [Suspect]
     Indication: CROHN'S DISEASE
     Route: 048
     Dates: start: 20090401
  2. BONIVA [Suspect]
     Indication: OSTEOPOROSIS PROPHYLAXIS
     Route: 048
     Dates: start: 20090601
  3. METOPROLOL TARTRATE [Concomitant]
     Indication: SUPRAVENTRICULAR TACHYCARDIA
     Route: 048
  4. ATIVAN [Concomitant]
     Indication: INSOMNIA
     Route: 048

REACTIONS (3)
  - ARTHRALGIA [None]
  - GROIN PAIN [None]
  - NECK PAIN [None]
